FAERS Safety Report 15137749 (Version 1)
Quarter: 2018Q3

REPORT INFORMATION
  Report Type: Spontaneous
  Country: US (occurrence: US)
  Receive Date: 20180712
  Receipt Date: 20180712
  Transmission Date: 20181010
  Serious: No
  Sender: FDA-Public Use
  Company Number: US-NOVOPROD-598696

PATIENT
  Sex: Female

DRUGS (2)
  1. TRESIBA [Suspect]
     Active Substance: INSULIN DEGLUDEC
     Indication: LATENT AUTOIMMUNE DIABETES IN ADULTS
     Dosage: UNK
     Route: 058
     Dates: start: 2017
  2. HUMALOG [Concomitant]
     Active Substance: INSULIN LISPRO
     Indication: BLOOD GLUCOSE INCREASED
     Dosage: MEAL TIME INSULIN AND TO CORRECT BLOOD SUGARS THROUGHOUT THE DAY IF NEEDED
     Route: 058

REACTIONS (3)
  - Blood glucose increased [Unknown]
  - Blood glucose fluctuation [Unknown]
  - Stress [Unknown]
